FAERS Safety Report 6901263-0 (Version None)
Quarter: 2010Q3

REPORT INFORMATION
  Report Type: 
  Country: None (occurrence: None)
  Receive Date: 20100803
  Receipt Date: 20100722
  Transmission Date: 20110219
  Serious: Yes (Hospitalization)
  Sender: FDA-Public Use
  Company Number: US-SANOFI-AVENTIS-2010SA043024

PATIENT
  Sex: Female

DRUGS (7)
  1. MULTAQ [Suspect]
     Indication: ATRIAL FIBRILLATION
     Route: 065
     Dates: end: 20100101
  2. LISINOPRIL [Concomitant]
  3. LUNESTA [Concomitant]
  4. MIRTAZAPINE [Concomitant]
  5. AMITRIPTYLINE HYDROCHLORIDE [Concomitant]
  6. ALLOPURINOL [Concomitant]
  7. WARFARIN SODIUM [Concomitant]

REACTIONS (6)
  - BRADYCARDIA [None]
  - CHOLELITHIASIS [None]
  - CHOLESTASIS [None]
  - LIVER FUNCTION TEST ABNORMAL [None]
  - NAUSEA [None]
  - PANCREATITIS [None]
